FAERS Safety Report 26196695 (Version 1)
Quarter: 2025Q4

REPORT INFORMATION
  Report Type: Spontaneous
  Country: CA (occurrence: CA)
  Receive Date: 20251224
  Receipt Date: 20251224
  Transmission Date: 20260118
  Serious: Yes (Life-Threatening, Hospitalization, Disabling, Other)
  Sender: BRISTOL-MYERS SQUIBB COMPANY
  Company Number: CA-BRISTOL-MYERS SQUIBB COMPANY-2025-168903

PATIENT
  Age: 44 Year
  Sex: Female

DRUGS (85)
  1. TRIAMCINOLONE ACETONIDE [Suspect]
     Active Substance: TRIAMCINOLONE ACETONIDE
     Indication: Product used for unknown indication
     Route: 014
  2. VITAMIN C [Concomitant]
     Active Substance: ASCORBIC ACID
     Indication: Product used for unknown indication
     Route: 016
  3. VITAMIN C [Concomitant]
     Active Substance: ASCORBIC ACID
  4. CALCIUM CARBONATE [Concomitant]
     Active Substance: CALCIUM CARBONATE
     Indication: Product used for unknown indication
  5. CELECOXIB [Concomitant]
     Active Substance: CELECOXIB
     Indication: Rheumatoid arthritis
     Route: 048
  6. CELECOXIB [Concomitant]
     Active Substance: CELECOXIB
     Indication: Arthritis
     Route: 048
  7. CELECOXIB [Concomitant]
     Active Substance: CELECOXIB
  8. CELECOXIB [Concomitant]
     Active Substance: CELECOXIB
  9. CELECOXIB [Concomitant]
     Active Substance: CELECOXIB
  10. DEXAMETHASONE SODIUM PHOSPHATE [Concomitant]
     Active Substance: DEXAMETHASONE SODIUM PHOSPHATE
     Indication: Rheumatoid arthritis
     Route: 047
  11. DICLOFENAC POTASSIUM [Concomitant]
     Active Substance: DICLOFENAC POTASSIUM
     Indication: Rheumatoid arthritis
  12. DICLOFENAC POTASSIUM [Concomitant]
     Active Substance: DICLOFENAC POTASSIUM
  13. DICLOFENAC POTASSIUM [Concomitant]
     Active Substance: DICLOFENAC POTASSIUM
     Route: 048
  14. DICLOFENAC POTASSIUM [Concomitant]
     Active Substance: DICLOFENAC POTASSIUM
  15. DILTIAZEM [Concomitant]
     Active Substance: DILTIAZEM
     Indication: Product used for unknown indication
     Route: 042
  16. DILTIAZEM [Concomitant]
     Active Substance: DILTIAZEM
  17. ERELZI [Concomitant]
     Active Substance: ETANERCEPT-SZZS
     Indication: Rheumatoid arthritis
     Route: 058
  18. ERELZI [Concomitant]
     Active Substance: ETANERCEPT-SZZS
  19. FOLIC ACID [Concomitant]
     Active Substance: FOLIC ACID
     Indication: Rheumatoid arthritis
     Route: 048
  20. FOLIC ACID [Concomitant]
     Active Substance: FOLIC ACID
     Route: 048
  21. FOLIC ACID [Concomitant]
     Active Substance: FOLIC ACID
     Route: 048
  22. FOLIC ACID [Concomitant]
     Active Substance: FOLIC ACID
  23. FOLIC ACID [Concomitant]
     Active Substance: FOLIC ACID
     Route: 048
  24. FOLIC ACID [Concomitant]
     Active Substance: FOLIC ACID
     Route: 048
  25. FOLIC ACID [Concomitant]
     Active Substance: FOLIC ACID
  26. FOLIC ACID [Concomitant]
     Active Substance: FOLIC ACID
  27. FOLIC ACID [Concomitant]
     Active Substance: FOLIC ACID
  28. FOLIC ACID [Concomitant]
     Active Substance: FOLIC ACID
  29. FOLIC ACID [Concomitant]
     Active Substance: FOLIC ACID
  30. FOLIC ACID [Concomitant]
     Active Substance: FOLIC ACID
     Route: 048
  31. FOLIC ACID [Concomitant]
     Active Substance: FOLIC ACID
  32. FOLIC ACID [Concomitant]
     Active Substance: FOLIC ACID
  33. FOLIC ACID [Concomitant]
     Active Substance: FOLIC ACID
  34. HYRIMOZ [Concomitant]
     Active Substance: ADALIMUMAB-ADAZ
     Indication: Rheumatoid arthritis
     Route: 058
  35. HYRIMOZ [Concomitant]
     Active Substance: ADALIMUMAB-ADAZ
     Indication: Psoriatic arthropathy
  36. HYRIMOZ [Concomitant]
     Active Substance: ADALIMUMAB-ADAZ
  37. HYRIMOZ [Concomitant]
     Active Substance: ADALIMUMAB-ADAZ
     Route: 042
  38. HYRIMOZ [Concomitant]
     Active Substance: ADALIMUMAB-ADAZ
     Route: 058
  39. METHOTREXATE [Concomitant]
     Active Substance: METHOTREXATE
     Indication: Rheumatoid arthritis
     Dosage: METHOTREXATE INJECTION, USP
  40. METHOTREXATE [Concomitant]
     Active Substance: METHOTREXATE
     Dosage: METHOTREXATE INJECTION, USP
     Route: 042
  41. METHOTREXATE [Concomitant]
     Active Substance: METHOTREXATE
     Dosage: METHOTREXATE INJECTION, USP
     Route: 058
  42. METHOTREXATE [Concomitant]
     Active Substance: METHOTREXATE
     Dosage: METHOTREXATE INJECTION, USP
     Route: 013
  43. METHOTREXATE [Concomitant]
     Active Substance: METHOTREXATE
     Dosage: METHOTREXATE INJECTION, USP
  44. METHOTREXATE [Concomitant]
     Active Substance: METHOTREXATE
     Dosage: METHOTREXATE INJECTION, USP
  45. METHOTREXATE [Concomitant]
     Active Substance: METHOTREXATE
     Dosage: METHOTREXATE INJECTION, USP
     Route: 058
  46. METHOTREXATE [Concomitant]
     Active Substance: METHOTREXATE
     Dosage: METHOTREXATE INJECTION, USP
     Route: 013
  47. METHOTREXATE [Concomitant]
     Active Substance: METHOTREXATE
     Dosage: METHOTREXATE INJECTION, USP
     Route: 013
  48. METHOTREXATE [Concomitant]
     Active Substance: METHOTREXATE
     Dosage: METHOTREXATE INJECTION, USP
     Route: 058
  49. METHOTREXATE [Concomitant]
     Active Substance: METHOTREXATE
     Dosage: METHOTREXATE INJECTION, USP
  50. METHOTREXATE [Concomitant]
     Active Substance: METHOTREXATE
     Dosage: METHOTREXATE INJECTION, USP
  51. METHOTREXATE [Concomitant]
     Active Substance: METHOTREXATE
     Dosage: METHOTREXATE INJECTION, USP
     Route: 058
  52. METHOTREXATE [Concomitant]
     Active Substance: METHOTREXATE
     Dosage: METHOTREXATE INJECTION, USP
     Route: 058
  53. METHOTREXATE [Concomitant]
     Active Substance: METHOTREXATE
     Dosage: METHOTREXATE INJECTION, USP
     Route: 048
  54. METHOTREXATE [Concomitant]
     Active Substance: METHOTREXATE
     Dosage: METHOTREXATE INJECTION, USP
     Route: 058
  55. METHOTREXATE [Concomitant]
     Active Substance: METHOTREXATE
     Dosage: METHOTREXATE INJECTION, USP
  56. METHOTREXATE [Concomitant]
     Active Substance: METHOTREXATE
     Dosage: METHOTREXATE INJECTION, USP
     Route: 013
  57. METHOTREXATE [Concomitant]
     Active Substance: METHOTREXATE
     Route: 048
  58. OXYCODONE [Concomitant]
     Active Substance: OXYCODONE
     Indication: Product used for unknown indication
  59. OXYCODONE [Concomitant]
     Active Substance: OXYCODONE
     Route: 042
  60. PANTOPRAZOLE SODIUM [Concomitant]
     Active Substance: PANTOPRAZOLE SODIUM
     Indication: Product used for unknown indication
     Route: 048
  61. PANTOPRAZOLE SODIUM [Concomitant]
     Active Substance: PANTOPRAZOLE SODIUM
  62. PREDNISOLONE [Concomitant]
     Active Substance: PREDNISOLONE
     Indication: Product used for unknown indication
     Route: 016
  63. PREDNISOLONE [Concomitant]
     Active Substance: PREDNISOLONE
  64. RITUXIMAB [Concomitant]
     Active Substance: RITUXIMAB
     Indication: Rheumatoid arthritis
     Route: 042
  65. RITUXIMAB [Concomitant]
     Active Substance: RITUXIMAB
     Route: 058
  66. RITUXIMAB [Concomitant]
     Active Substance: RITUXIMAB
     Route: 041
  67. RITUXIMAB [Concomitant]
     Active Substance: RITUXIMAB
  68. RITUXIMAB [Concomitant]
     Active Substance: RITUXIMAB
  69. RITUXIMAB [Concomitant]
     Active Substance: RITUXIMAB
     Route: 042
  70. APREMILAST [Concomitant]
     Active Substance: APREMILAST
     Indication: Product used for unknown indication
  71. DICLOFENAC SODIUM [Concomitant]
     Active Substance: DICLOFENAC SODIUM
     Indication: Rheumatoid arthritis
     Route: 047
  72. DICLOFENAC SODIUM [Concomitant]
     Active Substance: DICLOFENAC SODIUM
     Indication: Osteoarthritis
  73. DICLOFENAC SODIUM [Concomitant]
     Active Substance: DICLOFENAC SODIUM
     Indication: Inflammation
     Route: 047
  74. DICLOFENAC SODIUM [Concomitant]
     Active Substance: DICLOFENAC SODIUM
  75. HYDROCORTISONE [Concomitant]
     Active Substance: HYDROCORTISONE
     Indication: Product used for unknown indication
     Route: 048
  76. HYDROCORTISONE [Concomitant]
     Active Substance: HYDROCORTISONE
  77. HYDROCORTISONE [Concomitant]
     Active Substance: HYDROCORTISONE
     Route: 003
  78. HYDROCORTISONE [Concomitant]
     Active Substance: HYDROCORTISONE
  79. HYDROCORTISONE [Concomitant]
     Active Substance: HYDROCORTISONE
     Route: 058
  80. LEFLUNOMIDE [Concomitant]
     Active Substance: LEFLUNOMIDE
     Indication: Rheumatoid arthritis
     Route: 048
  81. LEFLUNOMIDE [Concomitant]
     Active Substance: LEFLUNOMIDE
  82. LEFLUNOMIDE [Concomitant]
     Active Substance: LEFLUNOMIDE
     Route: 048
  83. LEFLUNOMIDE [Concomitant]
     Active Substance: LEFLUNOMIDE
  84. MYCOPHENOLATE MOFETIL [Concomitant]
     Active Substance: MYCOPHENOLATE MOFETIL
     Indication: Product used for unknown indication
  85. PREGABALIN [Concomitant]
     Active Substance: PREGABALIN
     Indication: Product used for unknown indication

REACTIONS (7)
  - Drug ineffective [Unknown]
  - Inappropriate schedule of product administration [Unknown]
  - Inflammation [Unknown]
  - Infusion related reaction [Unknown]
  - Intentional product misuse [Unknown]
  - Hospitalisation [Unknown]
  - Adverse event [Unknown]
